FAERS Safety Report 18822040 (Version 1)
Quarter: 2021Q1

REPORT INFORMATION
  Report Type: Spontaneous
  Country: JP (occurrence: JP)
  Receive Date: 20210202
  Receipt Date: 20210202
  Transmission Date: 20210419
  Serious: Yes (Death, Other)
  Sender: FDA-Public Use
  Company Number: JP-PURDUE-USA-2021-0202492

PATIENT
  Age: 85 Year
  Sex: Male

DRUGS (1)
  1. NORSPAN [Suspect]
     Active Substance: BUPRENORPHINE
     Indication: PRODUCT USED FOR UNKNOWN INDICATION
     Dosage: 5 MCG, Q1H [STRENGTH 5 MG]
     Route: 062
     Dates: start: 202011, end: 202012

REACTIONS (3)
  - Neoplasm malignant [Unknown]
  - Metastases to liver [Unknown]
  - Death [Fatal]

NARRATIVE: CASE EVENT DATE: 20210102
